FAERS Safety Report 8170291-2 (Version None)
Quarter: 2012Q1

REPORT INFORMATION
  Report Type: 
  Country: None (occurrence: None)
  Receive Date: 20120228
  Receipt Date: 20120222
  Transmission Date: 20120608
  Serious: Yes (Hospitalization)
  Sender: FDA-Public Use
  Company Number: PHHY2012DE015618

PATIENT
  Sex: Female
  Weight: 58 kg

DRUGS (4)
  1. METOPROLOL TARTRATE [Concomitant]
     Dosage: 47.5 MG, PER DAY
     Dates: start: 20110502
  2. RAMIPRIL [Concomitant]
     Dosage: 2.5 MG, PER DAY
     Dates: start: 20110502
  3. TORSEMIDE [Concomitant]
     Dosage: 15 MG, PER DAY
     Dates: start: 20110502
  4. EXJADE [Suspect]
     Indication: CHRONIC MYELOMONOCYTIC LEUKAEMIA
     Route: 048
     Dates: start: 20110516

REACTIONS (1)
  - GENERAL PHYSICAL HEALTH DETERIORATION [None]
